FAERS Safety Report 26141524 (Version 1)
Quarter: 2025Q4

REPORT INFORMATION
  Report Type: Spontaneous
  Country: EU (occurrence: EU)
  Receive Date: 20251210
  Receipt Date: 20251210
  Transmission Date: 20260118
  Serious: Yes (Disabling, Other)
  Sender: NOVARTIS
  Company Number: EU-002147023-NVSC2025FR136549

PATIENT
  Age: 86 Year
  Sex: Female
  Weight: 60 kg

DRUGS (2)
  1. BEOVU [Suspect]
     Active Substance: BROLUCIZUMAB-DBLL
     Indication: Diabetic retinal oedema
     Dosage: UNK (1 SYRINGE)
     Route: 031
     Dates: start: 20250627
  2. BEOVU [Suspect]
     Active Substance: BROLUCIZUMAB-DBLL
     Indication: Macular oedema

REACTIONS (5)
  - Retinal occlusive vasculitis [Recovered/Resolved with Sequelae]
  - Iridocyclitis [Unknown]
  - Chorioretinitis [Unknown]
  - Visual acuity reduced [Unknown]
  - Off label use [Unknown]

NARRATIVE: CASE EVENT DATE: 20250101
